FAERS Safety Report 21596345 (Version 1)
Quarter: 2022Q4

REPORT INFORMATION
  Report Type: Report from Study
  Country: US (occurrence: US)
  Receive Date: 20221115
  Receipt Date: 20221115
  Transmission Date: 20230113
  Serious: No
  Sender: FDA-Public Use
  Company Number: US-ABBVIE-4155340

PATIENT
  Sex: Female

DRUGS (4)
  1. HUMIRA [Suspect]
     Active Substance: ADALIMUMAB
     Indication: Colitis ulcerative
     Dosage: FORM STRENGTH: 40 MG
     Route: 058
  2. MODERNA COVID-19 VACCINE [Concomitant]
     Active Substance: ELASOMERAN
     Indication: COVID-19 immunisation
     Dosage: FIRST DOSE, ONCE
     Route: 030
     Dates: start: 20210209, end: 20210209
  3. MODERNA COVID-19 VACCINE [Concomitant]
     Active Substance: ELASOMERAN
     Indication: COVID-19 immunisation
     Dosage: SECOND DOSE, ONCE
     Route: 030
     Dates: start: 20210308, end: 20210308
  4. MODERNA COVID-19 VACCINE [Concomitant]
     Active Substance: ELASOMERAN
     Indication: COVID-19 immunisation
     Dosage: THIRD/ BOOSTER DOSE, ONCE
     Route: 030
     Dates: start: 20211109, end: 20211109

REACTIONS (2)
  - Nasopharyngitis [Not Recovered/Not Resolved]
  - Insomnia [Unknown]
